FAERS Safety Report 6229175-9 (Version None)
Quarter: 2009Q2

REPORT INFORMATION
  Report Type: 
  Country: None (occurrence: None)
  Receive Date: 20090611
  Receipt Date: 20090611
  Transmission Date: 20091009
  Serious: Yes (Other)
  Sender: FDA-Public Use
  Company Number: None

PATIENT
  Sex: Female
  Weight: 70.5 kg

DRUGS (4)
  1. PREDNISONE [Suspect]
     Indication: ASTHMA
     Dosage: PREDNISONE BURST ORALLY
     Route: 048
     Dates: start: 20040101, end: 20060101
  2. DECADRON [Suspect]
     Indication: CONDITION AGGRAVATED
     Dosage: DECADRON BURST ORALLY
     Route: 048
     Dates: start: 20060101, end: 20080101
  3. SOLU-MEDROL [Concomitant]
  4. ADVAIR HFA [Concomitant]

REACTIONS (14)
  - BONE PAIN [None]
  - DIZZINESS [None]
  - DRUG INEFFECTIVE [None]
  - FACE OEDEMA [None]
  - HALLUCINATION [None]
  - HYPOAESTHESIA [None]
  - HYPOAESTHESIA FACIAL [None]
  - INSOMNIA [None]
  - MALAISE [None]
  - MUSCULAR WEAKNESS [None]
  - NERVOUSNESS [None]
  - PARAESTHESIA [None]
  - PARANOIA [None]
  - VERTIGO [None]
